FAERS Safety Report 9972091 (Version 1)
Quarter: 2014Q1

REPORT INFORMATION
  Report Type: Spontaneous
  Country: CA (occurrence: None)
  Receive Date: 20140304
  Receipt Date: 20140304
  Transmission Date: 20141002
  Serious: Yes (Hospitalization, Other)
  Sender: FDA-Public Use
  Company Number: FK201400639

PATIENT
  Age: 19 Year
  Sex: Female

DRUGS (11)
  1. VANCOMYCIN (MANUFACTURER UNKNOWN) (VANCOMYCIN) (VANCOMYCIN) [Suspect]
     Indication: STAPHYLOCOCCAL INFECTION
  2. RIFAMPIN [Suspect]
     Indication: STAPHYLOCOCCAL INFECTION
  3. HEPARIN SODIUM [Concomitant]
  4. ACETYLSALICYLIC ACID [Concomitant]
  5. THIAMINE [Concomitant]
  6. PANTOPRAZOLE [Concomitant]
  7. MAGNESIUM OXIDE [Concomitant]
  8. SENNA (SENNA ALEXANDRINA) [Concomitant]
  9. LACTULOSE [Concomitant]
  10. DOCUSATE SODIUM [Concomitant]
  11. TRAMADOL [Concomitant]

REACTIONS (1)
  - Pseudolymphoma [None]
